FAERS Safety Report 10732162 (Version 3)
Quarter: 2015Q1

REPORT INFORMATION
  Report Type: Report from Study
  Country: CA (occurrence: CA)
  Receive Date: 20150123
  Receipt Date: 20150218
  Transmission Date: 20150721
  Serious: Yes (Death, Hospitalization, Other)
  Sender: FDA-Public Use
  Company Number: PHHY2015CA005136

PATIENT
  Age: 73 Year
  Sex: Female

DRUGS (2)
  1. SANDOSTATIN [Suspect]
     Active Substance: OCTREOTIDE ACETATE
     Indication: NEUROENDOCRINE CARCINOMA METASTATIC
     Dosage: UNK UG, ONCE/SINGLE (TEST DOSE)
     Route: 058
     Dates: start: 20141215, end: 20141215
  2. SANDOSTATIN LAR DEPOT [Suspect]
     Active Substance: OCTREOTIDE ACETATE
     Indication: NEUROENDOCRINE CARCINOMA METASTATIC
     Dosage: 20 MG, EVERY 4 WEEKS
     Route: 030
     Dates: start: 20141219, end: 20150122

REACTIONS (11)
  - Serum ferritin increased [Unknown]
  - Dyspnoea [Unknown]
  - Swelling [Unknown]
  - Central nervous system lesion [Unknown]
  - Deep vein thrombosis [Unknown]
  - Pain [Unknown]
  - Peripheral embolism [Unknown]
  - Cerebral haemorrhage [Unknown]
  - General physical health deterioration [Unknown]
  - Malaise [Unknown]
  - Malignant neoplasm progression [Fatal]

NARRATIVE: CASE EVENT DATE: 201501
